FAERS Safety Report 7521693-6 (Version None)
Quarter: 2011Q2

REPORT INFORMATION
  Report Type: 
  Country: None (occurrence: None)
  Receive Date: 20110603
  Receipt Date: 20110523
  Transmission Date: 20111010
  Serious: Yes (Death)
  Sender: FDA-Public Use
  Company Number: US-CELGENEUS-163-21880-11052903

PATIENT
  Age: 82 Year
  Sex: Male

DRUGS (10)
  1. CARVEDILOL [Concomitant]
     Route: 065
  2. CYANOCOBALAMIN [Concomitant]
     Route: 065
  3. ZOCOR [Concomitant]
     Route: 065
  4. REVLIMID [Suspect]
     Dosage: 10 MILLIGRAM
     Route: 048
     Dates: start: 20100501
  5. REVLIMID [Suspect]
     Dosage: 5 MILLIGRAM
     Route: 048
     Dates: start: 20101101
  6. CALCIUM WITH VITAMIN D [Concomitant]
     Route: 065
  7. FOLIC ACID [Concomitant]
     Route: 065
  8. EPOETIN [Concomitant]
     Route: 065
  9. CIPROFLOXACIN [Concomitant]
     Route: 065
  10. M.V.I. [Concomitant]
     Route: 065

REACTIONS (2)
  - NO THERAPEUTIC RESPONSE [None]
  - DEATH [None]
